FAERS Safety Report 5194437-3 (Version None)
Quarter: 2006Q4

REPORT INFORMATION
  Report Type: 
  Country: None (occurrence: None)
  Receive Date: 20061222
  Receipt Date: 20061212
  Transmission Date: 20070319
  Serious: Yes (Other)
  Sender: FDA-Public Use
  Company Number: RENA-12016

PATIENT
  Age: 49 Year
  Sex: Female
  Weight: 73.8 kg

DRUGS (15)
  1. RENAGEL [Suspect]
     Indication: HYPERPHOSPHATAEMIA
     Dosage: 4.8 G DAILY PO
     Route: 048
     Dates: start: 20060221
  2. RENAGEL [Suspect]
     Indication: HYPERPHOSPHATAEMIA
  3. ASPIRIN [Concomitant]
  4. CLINDAMYCIN [Concomitant]
  5. HUMALOG [Concomitant]
  6. LISINOPRIL [Concomitant]
  7. METOPROLOL SUCCINATE [Concomitant]
  8. NEPHROCAPS [Concomitant]
  9. SULFACETAMIDE [Concomitant]
  10. TRETINOIN [Concomitant]
  11. ZOCOR [Concomitant]
  12. ERGOCALCIFEROL [Concomitant]
  13. FERRLECIT [Concomitant]
  14. ZEMPLAR [Concomitant]
  15. CLARITIN [Concomitant]

REACTIONS (1)
  - FOREIGN BODY TRAUMA [None]
